FAERS Safety Report 4377973-9 (Version None)
Quarter: 2004Q2

REPORT INFORMATION
  Report Type: 
  Country: None (occurrence: None)
  Receive Date: 20040616
  Receipt Date: 20040602
  Transmission Date: 20050107
  Serious: Yes (Hospitalization)
  Sender: FDA-Public Use
  Company Number: PHRM2004FR01992

PATIENT
  Age: 58 Year
  Sex: Male

DRUGS (17)
  1. TAREG [Suspect]
     Dosage: 80 MG, QD
     Route: 048
     Dates: start: 20040402, end: 20040406
  2. TRIATEC [Suspect]
     Dosage: 1.25 MG, QD
     Route: 048
     Dates: end: 20040402
  3. TRIATEC [Suspect]
     Route: 048
     Dates: start: 20040406, end: 20040410
  4. NOVORAPID [Concomitant]
  5. LANTUS [Concomitant]
  6. METFORMIN HCL [Concomitant]
  7. KERLONE [Concomitant]
  8. FLUDEX [Concomitant]
  9. FENOFIBRATE [Concomitant]
  10. LEVOTHYROXINE SODIUM [Concomitant]
  11. PLAVIX [Concomitant]
  12. FORADIL [Concomitant]
     Indication: COUGH
  13. MIFLASONE [Concomitant]
     Indication: COUGH
  14. NETUX [Concomitant]
     Indication: COUGH
  15. NAXY [Concomitant]
     Indication: COUGH
  16. HELICIDINE [Concomitant]
     Indication: COUGH
     Route: 048
  17. PNEUMOREL [Concomitant]
     Indication: COUGH

REACTIONS (6)
  - ARTHRALGIA [None]
  - C-REACTIVE PROTEIN INCREASED [None]
  - COUGH [None]
  - EYELID OEDEMA [None]
  - PYREXIA [None]
  - URTICARIA [None]
